FAERS Safety Report 5018118-1 (Version None)
Quarter: 2006Q2

REPORT INFORMATION
  Report Type: 
  Country: None (occurrence: None)
  Receive Date: 20060530
  Receipt Date: 20060503
  Transmission Date: 20061013
  Serious: Yes (Other)
  Sender: FDA-Public Use
  Company Number: 2006043552

PATIENT
  Age: 36 Year
  Sex: Female
  Weight: 64.4108 kg

DRUGS (15)
  1. VFEND [Suspect]
     Indication: CANDIDIASIS
     Dosage: SEE IMAGE
     Dates: start: 20060125
  2. VFEND [Suspect]
     Indication: CANDIDIASIS
     Dosage: SEE IMAGE
     Dates: start: 20060217
  3. FLAGYL [Suspect]
     Indication: PROPHYLAXIS
     Dates: start: 20060329
  4. AMBIEN [Suspect]
     Indication: INSOMNIA
     Dates: start: 20060101, end: 20060227
  5. GABITRIL [Suspect]
     Indication: INSOMNIA
     Dates: end: 20060101
  6. PENICILLIN VK [Suspect]
     Indication: ILL-DEFINED DISORDER
     Dosage: SEE IMAGE
     Route: 048
     Dates: start: 20060227
  7. PENICILLIN VK [Suspect]
     Indication: ILL-DEFINED DISORDER
     Dosage: SEE IMAGE
     Route: 048
     Dates: start: 20060301
  8. VANCOMYCIN [Suspect]
     Indication: ILL-DEFINED DISORDER
     Dosage: 500 MG (125 MG, 4 IN 1 D), ORAL
     Route: 048
  9. PROVIGIL [Concomitant]
  10. MOTRIN [Concomitant]
  11. NORTRIPTYLINE (NORTRIPTYLINE) [Concomitant]
  12. CONTRACEPTIVE, (CONTRACEPTIVE,) [Concomitant]
  13. NUTRITIONAL SUPPLEMENT (GENERAL NUTRIENTS) [Concomitant]
  14. ACIDOPHILUS (LACTOBACILLUS ACIDOPHILUS) [Concomitant]
  15. YASMIN [Concomitant]

REACTIONS (53)
  - ANAL DISCOMFORT [None]
  - ANXIETY [None]
  - ARTERITIS [None]
  - ARTHRALGIA [None]
  - BACK PAIN [None]
  - BREATH SOUNDS ABNORMAL [None]
  - CARDIAC MURMUR [None]
  - CHEST PAIN [None]
  - CHRONIC TONSILLITIS [None]
  - CLOSTRIDIUM DIFFICILE COLITIS [None]
  - CONFUSIONAL STATE [None]
  - CONSTIPATION [None]
  - CRYING [None]
  - DEPRESSION [None]
  - DISEASE RECURRENCE [None]
  - DISTURBANCE IN ATTENTION [None]
  - DRUG INEFFECTIVE [None]
  - DRUG INTERACTION [None]
  - DYSPNOEA EXERTIONAL [None]
  - ENTERITIS [None]
  - FATIGUE [None]
  - FIBROMYALGIA [None]
  - FUNGAL INFECTION [None]
  - GALLBLADDER DISORDER [None]
  - GRAVITATIONAL OEDEMA [None]
  - HEADACHE [None]
  - HYPERHIDROSIS [None]
  - HYPOTHYROIDISM [None]
  - INFLUENZA LIKE ILLNESS [None]
  - INSOMNIA [None]
  - IRRITABILITY [None]
  - JOINT EFFUSION [None]
  - LYME DISEASE [None]
  - LYMPHADENOPATHY [None]
  - MIGRAINE [None]
  - MOOD SWINGS [None]
  - MUSCULAR WEAKNESS [None]
  - MYALGIA [None]
  - MYOPATHY [None]
  - NECK PAIN [None]
  - NERVOUS SYSTEM DISORDER [None]
  - NERVOUSNESS [None]
  - NEUROPATHY PERIPHERAL [None]
  - NIGHTMARE [None]
  - PAIN IN EXTREMITY [None]
  - PERICARDIAL RUB [None]
  - POLYARTHRITIS [None]
  - PREMENSTRUAL SYNDROME [None]
  - PROCTALGIA [None]
  - SALMONELLOSIS [None]
  - SOMNOLENCE [None]
  - STRESS [None]
  - TREMOR [None]
